FAERS Safety Report 21479864 (Version 2)
Quarter: 2022Q4

REPORT INFORMATION
  Report Type: Spontaneous
  Country: US (occurrence: US)
  Receive Date: 20221019
  Receipt Date: 20221019
  Transmission Date: 20230113
  Serious: Yes (Life-Threatening, Hospitalization, Other)
  Sender: FDA-Public Use
  Company Number: US-PFIZER INC-PV202200079477

PATIENT
  Age: 70 Year
  Sex: Male

DRUGS (6)
  1. SPIRONOLACTONE [Suspect]
     Active Substance: SPIRONOLACTONE
     Indication: Coronary artery disease
     Dosage: UNK (TAKING AS PRESCRIBED)
  2. SPIRONOLACTONE [Suspect]
     Active Substance: SPIRONOLACTONE
     Indication: Hypertension
  3. CARVEDILOL [Suspect]
     Active Substance: CARVEDILOL
     Indication: Coronary artery disease
     Dosage: UNK (TAKING AS PRESCRIBED)
  4. CARVEDILOL [Suspect]
     Active Substance: CARVEDILOL
     Indication: Hypertension
  5. LISINOPRIL [Suspect]
     Active Substance: LISINOPRIL
     Indication: Coronary artery disease
     Dosage: UNK (TAKING AS PRESCRIBED)
  6. LISINOPRIL [Suspect]
     Active Substance: LISINOPRIL
     Indication: Hypertension

REACTIONS (1)
  - BRASH syndrome [Recovered/Resolved]
